FAERS Safety Report 12734044 (Version 3)
Quarter: 2016Q4

REPORT INFORMATION
  Report Type: Report from Study
  Country: JP (occurrence: JP)
  Receive Date: 20160912
  Receipt Date: 20161229
  Transmission Date: 20170207
  Serious: Yes (Hospitalization, Other)
  Sender: FDA-Public Use
  Company Number: JP-AMGEN-JPNCT2016122990

PATIENT
  Age: 76 Year
  Sex: Female
  Weight: 42 kg

DRUGS (27)
  1. DARBEPOETIN ALFA [Suspect]
     Active Substance: DARBEPOETIN ALFA
     Dosage: 120 MUG, QMO
     Route: 058
     Dates: start: 20151016, end: 20151116
  2. DARBEPOETIN ALFA [Suspect]
     Active Substance: DARBEPOETIN ALFA
     Dosage: 120 MUG, QWK
     Route: 058
     Dates: start: 20160125, end: 20160203
  3. DARBEPOETIN ALFA [Suspect]
     Active Substance: DARBEPOETIN ALFA
     Dosage: 120 MUG, Q2WK
     Route: 058
     Dates: start: 20160105, end: 20160118
  4. DARBEPOETIN ALFA [Suspect]
     Active Substance: DARBEPOETIN ALFA
     Dosage: 120 MUG, QD
     Route: 058
     Dates: start: 20160527, end: 20160527
  5. DARBEPOETIN ALFA [Suspect]
     Active Substance: DARBEPOETIN ALFA
     Indication: MYELODYSPLASTIC SYNDROME
     Dosage: 30 MUG, Q2WK
     Route: 058
     Dates: start: 20150715, end: 20150729
  6. DARBEPOETIN ALFA [Suspect]
     Active Substance: DARBEPOETIN ALFA
     Dosage: 120 MUG, Q3WK
     Route: 058
     Dates: start: 20150810, end: 20150902
  7. DARBEPOETIN ALFA [Suspect]
     Active Substance: DARBEPOETIN ALFA
     Dosage: 120 MUG, QWK
     Route: 058
     Dates: start: 20151216, end: 20151222
  8. GOODMIN [Concomitant]
     Active Substance: BROTIZOLAM
     Indication: INSOMNIA
     Dosage: 0.25 MG, UNK
     Route: 048
     Dates: start: 20140911
  9. SANMEL [Concomitant]
     Indication: ABDOMINAL PAIN UPPER
     Dosage: 45 ML, UNK
     Route: 048
     Dates: start: 20150430
  10. DARBEPOETIN ALFA [Suspect]
     Active Substance: DARBEPOETIN ALFA
     Dosage: 60 MUG, QD
     Route: 058
     Dates: start: 20150803, end: 20150803
  11. DARBEPOETIN ALFA [Suspect]
     Active Substance: DARBEPOETIN ALFA
     Dosage: 120 MUG, QWK
     Route: 058
     Dates: start: 20160413, end: 20160506
  12. CELECOX [Concomitant]
     Active Substance: CELECOXIB
     Indication: SPINAL OSTEOARTHRITIS
     Dosage: 200 MG, UNK
     Route: 048
     Dates: start: 20141104
  13. AMITIZA [Concomitant]
     Active Substance: LUBIPROSTONE
     Indication: CONSTIPATION
     Dosage: 48 MUG, UNK
     Route: 048
     Dates: start: 20151124
  14. DARBEPOETIN ALFA [Suspect]
     Active Substance: DARBEPOETIN ALFA
     Dosage: 120 MUG, Q2WK
     Route: 058
     Dates: start: 20150924, end: 20151008
  15. ROZEREM [Concomitant]
     Active Substance: RAMELTEON
     Indication: INSOMNIA
     Dosage: 8 MG, UNK
     Route: 048
     Dates: start: 20140926
  16. HERBAL NOS [Concomitant]
     Active Substance: HERBALS
     Indication: DECREASED APPETITE
     Dosage: 7.5 G, UNK
     Route: 048
     Dates: start: 20140930, end: 20160308
  17. SHAKUYAKUKANZOTO [Concomitant]
     Active Substance: HERBALS
     Dosage: 7.5 G, UNK
     Route: 048
     Dates: start: 20160323, end: 20160405
  18. NEXIUM [Concomitant]
     Active Substance: ESOMEPRAZOLE MAGNESIUM
     Dosage: 20 MG, UNK
     Route: 048
     Dates: start: 20160302, end: 20160322
  19. ENSURE [Concomitant]
     Active Substance: AMINO ACIDS\DEXTROSE\ELECTROLYTES NOS\SOYBEAN OIL\VITAMINS
     Indication: DECREASED APPETITE
     Dosage: 250 ML, UNK
     Route: 048
     Dates: start: 20160420
  20. DARBEPOETIN ALFA [Suspect]
     Active Substance: DARBEPOETIN ALFA
     Dosage: 120 MUG, QWK
     Route: 058
     Dates: start: 20160302, end: 20160323
  21. THIATON [Concomitant]
     Active Substance: TIQUIZIUM BROMIDE
     Dosage: 15 MG, UNK
     Route: 048
     Dates: start: 20160302
  22. VIDAZA [Concomitant]
     Active Substance: AZACITIDINE
     Indication: MYELODYSPLASTIC SYNDROME
     Dosage: 100 MG, UNK
     Route: 065
     Dates: start: 20150811, end: 20160324
  23. DARBEPOETIN ALFA [Suspect]
     Active Substance: DARBEPOETIN ALFA
     Dosage: 120 MUG, QWK
     Route: 058
     Dates: start: 20151123, end: 20151130
  24. DARBEPOETIN ALFA [Suspect]
     Active Substance: DARBEPOETIN ALFA
     Dosage: 120 MUG, QD
     Route: 058
     Dates: start: 20160223, end: 20160223
  25. LANSOPRAZOLE. [Concomitant]
     Active Substance: LANSOPRAZOLE
     Indication: ABDOMINAL PAIN UPPER
     Dosage: 15 MG, UNK
     Route: 048
     Dates: start: 20160323
  26. REBAMIPIDE [Concomitant]
     Active Substance: REBAMIPIDE
     Indication: CHRONIC GASTRITIS
     Dosage: 200 MG, UNK
     Route: 048
     Dates: start: 20141104
  27. MAGMITT [Concomitant]
     Active Substance: MAGNESIUM OXIDE
     Indication: CONSTIPATION
     Dosage: 990 MG, UNK
     Route: 048
     Dates: start: 20151124

REACTIONS (5)
  - Pyrexia [Recovering/Resolving]
  - Abdominal pain [Recovered/Resolved]
  - Acute myeloid leukaemia [Unknown]
  - Blood pressure increased [Recovering/Resolving]
  - Myelodysplastic syndrome transformation [Unknown]

NARRATIVE: CASE EVENT DATE: 20150727
